FAERS Safety Report 9231013 (Version 1)
Quarter: 2013Q1

REPORT INFORMATION
  Report Type: Spontaneous
  Country: US (occurrence: None)
  Receive Date: 20121031
  Receipt Date: 20121031
  Transmission Date: 20140127
  Serious: No
  Sender: FDA-Public Use
  Company Number: PHEH2012US014699

PATIENT
  Age: 48 Year
  Sex: Male

DRUGS (11)
  1. GILENYA (FTY)CAPSULE, 0.5MG [Suspect]
     Route: 048
  2. UROXETRAL (ALFUZOSIN HYDROCHLORIDE) [Concomitant]
  3. GABAPENTIN (GABAPENTIN) [Concomitant]
  4. FISH OIL (FISH OIL) [Concomitant]
  5. ASPIRIN (ACETYLSALICYLIC ACID) [Concomitant]
  6. VITAMIN D (ERGOCALCIFEROL) [Concomitant]
  7. VITAMIN B COMPLEX [Concomitant]
  8. GLUCOSAMINE (GLUCOSAMINE) [Concomitant]
  9. SAM-E (ADEMETINONINE) [Concomitant]
  10. VITAMIN C [Concomitant]
  11. MAGNESIUM (MAGNESIUM) [Concomitant]

REACTIONS (1)
  - Influenza like illness [None]
